FAERS Safety Report 7879140-0 (Version None)
Quarter: 2011Q4

REPORT INFORMATION
  Report Type: 
  Country: None (occurrence: None)
  Receive Date: 20111101
  Receipt Date: 20111019
  Transmission Date: 20120403
  Serious: Yes (Other)
  Sender: FDA-Public Use
  Company Number: US-BAYER-2010-007152

PATIENT
  Age: 28 Year
  Sex: Female
  Weight: 78.458 kg

DRUGS (7)
  1. IBUPROFEN [Concomitant]
     Route: 048
  2. VICOPROFEN [Concomitant]
  3. YASMIN [Suspect]
     Indication: ACNE
     Dosage: UNK
     Dates: start: 20060301, end: 20080201
  4. YAZ [Suspect]
     Indication: ACNE
     Dosage: UNK
     Dates: start: 20080201, end: 20100301
  5. YAZ [Suspect]
     Indication: CONTRACEPTION
  6. ASCORBIC ACID [Concomitant]
     Route: 048
  7. YASMIN [Suspect]
     Indication: CONTRACEPTION

REACTIONS (3)
  - CHOLECYSTITIS ACUTE [None]
  - CHOLECYSTITIS CHRONIC [None]
  - CHOLELITHIASIS [None]
